FAERS Safety Report 6271464-6 (Version None)
Quarter: 2009Q3

REPORT INFORMATION
  Report Type: 
  Country: None (occurrence: None)
  Receive Date: 20090717
  Receipt Date: 20090707
  Transmission Date: 20100115
  Serious: Yes (Hospitalization, Other)
  Sender: FDA-Public Use
  Company Number: PHHY2009FR28746

PATIENT
  Sex: Male

DRUGS (2)
  1. VOLTAREN [Suspect]
     Dosage: 50 MG QW OR 50 MG QW2
     Route: 048
     Dates: start: 19980101
  2. REDUCE FAT FAST [Concomitant]
     Dosage: UNK

REACTIONS (2)
  - ABDOMINAL PAIN UPPER [None]
  - LIPASE INCREASED [None]
